FAERS Safety Report 9733376 (Version 4)
Quarter: 2014Q1

REPORT INFORMATION
  Report Type: Spontaneous
  Country: AT (occurrence: AT)
  Receive Date: 20131205
  Receipt Date: 20140115
  Transmission Date: 20141002
  Serious: Yes (Hospitalization, Other)
  Sender: FDA-Public Use
  Company Number: AT-BAYER-2013-114681

PATIENT
  Age: 26 Year
  Sex: Female

DRUGS (4)
  1. YAZ [Suspect]
     Dosage: UNK
     Route: 048
  2. KEPPRA [Suspect]
     Indication: EPILEPSY
  3. TRAMAL [Concomitant]
     Indication: SPINAL PAIN
     Dosage: 30 GTT, QD
  4. FRAXIPARIN [Suspect]

REACTIONS (17)
  - Cerebrovascular accident [None]
  - Venous thrombosis limb [None]
  - Dizziness [None]
  - Circulatory collapse [None]
  - Cerebral thrombosis [None]
  - Hypoaesthesia [None]
  - Nausea [None]
  - Constipation [Recovered/Resolved]
  - Spinal pain [None]
  - Vertigo [None]
  - Back pain [None]
  - Partial seizures [None]
  - Haemorrhagic infarction [None]
  - Epilepsy [None]
  - Hepatic enzyme increased [None]
  - Vomiting [None]
  - Headache [None]
